FAERS Safety Report 9203411 (Version 2)
Quarter: 2013Q2

REPORT INFORMATION
  Report Type: Spontaneous
  Country: DE (occurrence: None)
  Receive Date: 20130328
  Receipt Date: 20130429
  Transmission Date: 20140414
  Serious: Yes (Hospitalization)
  Sender: FDA-Public Use
  Company Number: DE-1197311

PATIENT
  Age: 83 Year
  Sex: Male

DRUGS (1)
  1. AZOPT [Suspect]
     Indication: GLAUCOMA
     Route: 047
     Dates: start: 20120309, end: 20130318

REACTIONS (2)
  - Blood pressure fluctuation [None]
  - Hypertension [None]
